FAERS Safety Report 25810591 (Version 1)
Quarter: 2025Q3

REPORT INFORMATION
  Report Type: Spontaneous
  Country: US (occurrence: US)
  Receive Date: 20250917
  Receipt Date: 20250917
  Transmission Date: 20251020
  Serious: Yes (Other)
  Sender: COOPERSURGICAL
  Company Number: US-COOPERSURGICAL, INC.-2025CPS006654

PATIENT
  Age: 35 Year
  Sex: Female
  Weight: 71.655 kg

DRUGS (5)
  1. PARAGARD T 380A [Suspect]
     Active Substance: COPPER
     Indication: Contraception
     Route: 015
     Dates: start: 20160316
  2. LEVOTHYROXINE [Concomitant]
     Active Substance: LEVOTHYROXINE
     Dates: start: 2014
  3. OMEPRAZOLE [Concomitant]
     Active Substance: OMEPRAZOLE
     Dates: start: 2015
  4. EZETIMIBE [Concomitant]
     Active Substance: EZETIMIBE
  5. OZEMPIC [Concomitant]
     Active Substance: SEMAGLUTIDE
     Dates: start: 202303, end: 2023

REACTIONS (16)
  - Hysterectomy [Recovered/Resolved]
  - Salpingectomy [Recovered/Resolved]
  - Uterine leiomyoma [Recovered/Resolved]
  - Device breakage [Recovered/Resolved]
  - Foreign body in reproductive tract [Recovered/Resolved]
  - Complication of device removal [Recovered/Resolved]
  - Embedded device [Recovered/Resolved]
  - Proctalgia [Unknown]
  - Sensation of foreign body [Recovered/Resolved]
  - Irritability [Unknown]
  - Temperature regulation disorder [Unknown]
  - Device expulsion [Recovered/Resolved]
  - Intermenstrual bleeding [Unknown]
  - Muscle spasms [Unknown]
  - Abnormal uterine bleeding [Recovered/Resolved]
  - Pain [Unknown]

NARRATIVE: CASE EVENT DATE: 20160301
